FAERS Safety Report 15937736 (Version 1)
Quarter: 2019Q1

REPORT INFORMATION
  Report Type: Spontaneous
  Country: US (occurrence: US)
  Receive Date: 20190208
  Receipt Date: 20190208
  Transmission Date: 20190417
  Serious: No
  Sender: FDA-Public Use
  Company Number: US-AEGERION PHARMACEUTICAL, INC-AEGR004041

PATIENT
  Sex: Female
  Weight: 44.44 kg

DRUGS (1)
  1. MYALEPT [Suspect]
     Active Substance: METRELEPTIN
     Indication: LIPODYSTROPHY ACQUIRED
     Dosage: 4.7 MG, BID
     Route: 058
     Dates: start: 2015

REACTIONS (3)
  - Anxiety [Unknown]
  - Injection site pruritus [Recovered/Resolved]
  - Depression [Unknown]
